FAERS Safety Report 20889229 (Version 2)
Quarter: 2022Q2

REPORT INFORMATION
  Report Type: Spontaneous
  Country: US (occurrence: US)
  Receive Date: 20220530
  Receipt Date: 20220603
  Transmission Date: 20220721
  Serious: No
  Sender: FDA-Public Use
  Company Number: US-BRISTOL-MYERS SQUIBB COMPANY-2022-041737

PATIENT
  Age: 53 Year
  Sex: Female
  Weight: 140 kg

DRUGS (2)
  1. REVLIMID [Suspect]
     Active Substance: LENALIDOMIDE
     Indication: Plasma cell myeloma
     Dosage: 2W, 1W OFF
     Route: 048
     Dates: start: 20220410
  2. REVLIMID [Suspect]
     Active Substance: LENALIDOMIDE
     Dosage: 2W, 1OFF.
     Route: 048
     Dates: start: 20220401

REACTIONS (2)
  - Fluid retention [Unknown]
  - Dysstasia [Unknown]
